FAERS Safety Report 21005131 (Version 3)
Quarter: 2022Q3

REPORT INFORMATION
  Report Type: Report from Study
  Country: US (occurrence: US)
  Receive Date: 20220624
  Receipt Date: 20220704
  Transmission Date: 20221026
  Serious: No
  Sender: FDA-Public Use
  Company Number: US-NOVARTISTESTPH-NVSC2022US143992

PATIENT
  Sex: Male

DRUGS (1)
  1. ENTRESTO [Suspect]
     Active Substance: SACUBITRIL\VALSARTAN
     Indication: Product used for unknown indication
     Dosage: 1 DOSAGE FORM, BID (24/26MG)
     Route: 048
     Dates: start: 2022

REACTIONS (6)
  - Arthralgia [Unknown]
  - Somnolence [Unknown]
  - Dyspepsia [Unknown]
  - Blood potassium decreased [Unknown]
  - Flatulence [Unknown]
  - Fatigue [Unknown]
